FAERS Safety Report 8014062-6 (Version None)
Quarter: 2011Q4

REPORT INFORMATION
  Report Type: 
  Country: None (occurrence: None)
  Receive Date: 20111229
  Receipt Date: 20111107
  Transmission Date: 20120403
  Serious: Yes (Other)
  Sender: FDA-Public Use
  Company Number: NL-ROCHE-1009755

PATIENT

DRUGS (2)
  1. INVIRASE [Suspect]
     Indication: HIV INFECTION
     Dosage: 2000/100 MG
  2. EMTRICITABINE AND TENOFOVIR DISOPROXIL FUMARATE [Suspect]
     Indication: HIV INFECTION

REACTIONS (2)
  - RASH [None]
  - HYPERBILIRUBINAEMIA [None]
